FAERS Safety Report 5478809-5 (Version None)
Quarter: 2007Q4

REPORT INFORMATION
  Report Type: 
  Country: None (occurrence: None)
  Receive Date: 20071002
  Receipt Date: 20070918
  Transmission Date: 20080405
  Serious: Yes (Life-Threatening, Hospitalization)
  Sender: FDA-Public Use
  Company Number: 237972K07USA

PATIENT
  Age: 60 Year
  Sex: Female

DRUGS (7)
  1. REBIF [Suspect]
     Indication: MULTIPLE SCLEROSIS
     Dosage: 44 MCG, 3 IN 1 WEEKS, SUBCUTANEOUS
     Route: 058
     Dates: start: 20040412, end: 20070601
  2. NEURONTIN [Concomitant]
  3. TYLENOL NO. 4(PANADEINE CO) [Concomitant]
  4. TIZANIDINE HCL [Concomitant]
  5. REGLAN [Concomitant]
  6. ETODOLAC [Concomitant]
  7. KEPPRA [Concomitant]

REACTIONS (4)
  - ANAEMIA [None]
  - COMA [None]
  - PSEUDOMONAL SEPSIS [None]
  - RESPIRATORY FAILURE [None]
